FAERS Safety Report 25627941 (Version 1)
Quarter: 2025Q3

REPORT INFORMATION
  Report Type: Spontaneous
  Country: US (occurrence: US)
  Receive Date: 20250731
  Receipt Date: 20250731
  Transmission Date: 20251020
  Serious: Yes (Hospitalization, Other)
  Sender: FRESENIUS KABI
  Company Number: US-FreseniusKabi-FK202510654

PATIENT
  Age: 75 Year
  Sex: Female

DRUGS (1)
  1. HYDRALAZINE [Suspect]
     Active Substance: HYDRALAZINE HYDROCHLORIDE
     Indication: Hypertension

REACTIONS (3)
  - Anti-neutrophil cytoplasmic antibody positive vasculitis [Unknown]
  - Glomerulonephritis rapidly progressive [Unknown]
  - Pulmonary renal syndrome [Unknown]
